FAERS Safety Report 21514745 (Version 1)
Quarter: 2022Q4

REPORT INFORMATION
  Report Type: Spontaneous
  Country: US (occurrence: US)
  Receive Date: 20221027
  Receipt Date: 20221027
  Transmission Date: 20230113
  Serious: Yes (Life-Threatening, Other)
  Sender: FDA-Public Use
  Company Number: US-PFIZER INC-PV202200083178

PATIENT
  Age: 19 Day
  Sex: Male

DRUGS (2)
  1. FENTANYL CITRATE [Suspect]
     Active Substance: FENTANYL CITRATE
     Dosage: UNK
  2. XYLAZINE [Suspect]
     Active Substance: XYLAZINE
     Dosage: UNK

REACTIONS (2)
  - Off label use [Unknown]
  - Toxicity to various agents [Recovered/Resolved]
